FAERS Safety Report 7004569-2 (Version None)
Quarter: 2010Q3

REPORT INFORMATION
  Report Type: 
  Country: None (occurrence: None)
  Receive Date: 20100921
  Receipt Date: 20100916
  Transmission Date: 20110219
  Serious: Yes (Hospitalization, Other)
  Sender: FDA-Public Use
  Company Number: US-ASTRAZENECA-2006UW07715

PATIENT
  Age: 522 Month
  Sex: Female
  Weight: 52.2 kg

DRUGS (32)
  1. SEROQUEL [Suspect]
     Indication: SCHIZOPHRENIA
     Dosage: 50 MG, 300 MG
     Route: 048
     Dates: start: 20010101, end: 20070101
  2. SEROQUEL [Suspect]
     Indication: BIPOLAR DISORDER
     Dosage: 50 MG, 300 MG
     Route: 048
     Dates: start: 20010101, end: 20070101
  3. SEROQUEL [Suspect]
     Indication: BIPOLAR I DISORDER
     Dosage: 50 MG, 300 MG
     Route: 048
     Dates: start: 20010101, end: 20070101
  4. SEROQUEL [Suspect]
     Indication: INSOMNIA
     Dosage: 50 MG, 300 MG
     Route: 048
     Dates: start: 20010101, end: 20070101
  5. SEROQUEL [Suspect]
     Dosage: 25-300 MG
     Route: 048
     Dates: start: 20021230
  6. SEROQUEL [Suspect]
     Dosage: 25-300 MG
     Route: 048
     Dates: start: 20021230
  7. SEROQUEL [Suspect]
     Dosage: 25-300 MG
     Route: 048
     Dates: start: 20021230
  8. SEROQUEL [Suspect]
     Dosage: 25-300 MG
     Route: 048
     Dates: start: 20021230
  9. SEROQUEL [Suspect]
     Dosage: 25 MG-100 MG
     Route: 048
     Dates: start: 20030809, end: 20071031
  10. SEROQUEL [Suspect]
     Dosage: 25 MG-100 MG
     Route: 048
     Dates: start: 20030809, end: 20071031
  11. SEROQUEL [Suspect]
     Dosage: 25 MG-100 MG
     Route: 048
     Dates: start: 20030809, end: 20071031
  12. SEROQUEL [Suspect]
     Dosage: 25 MG-100 MG
     Route: 048
     Dates: start: 20030809, end: 20071031
  13. CLOZARIL [Concomitant]
     Route: 065
  14. HALDOL [Concomitant]
     Route: 065
  15. NAVANE [Concomitant]
     Route: 065
  16. RISPERDAL [Concomitant]
     Dosage: 0.5-1 MG
     Route: 065
     Dates: start: 20030101
  17. STELAZINE [Concomitant]
  18. ZYPREXA [Concomitant]
     Dosage: 10 MG
     Dates: start: 19990101, end: 20020101
  19. ZYPREXA [Concomitant]
     Dates: start: 20060101
  20. METHADONE HCL [Concomitant]
     Route: 065
     Dates: start: 20060101
  21. DILAUDID [Concomitant]
     Indication: PAIN
     Route: 058
  22. PHENERGAN [Concomitant]
     Indication: NAUSEA
     Dosage: 12.5MG-200MG DAILY
     Route: 054
  23. DEMEROL [Concomitant]
     Route: 030
  24. VISTARIL INJ [Concomitant]
     Indication: NAUSEA
     Route: 030
     Dates: start: 20020802
  25. VISTARIL INJ [Concomitant]
     Indication: VOMITING
     Route: 030
     Dates: start: 20020802
  26. XANAX [Concomitant]
     Indication: ANXIETY
     Dosage: 0.25MG-6MG
     Route: 048
  27. NEXIUM [Concomitant]
     Route: 065
  28. PERCOCET [Concomitant]
     Indication: PAIN
     Dosage: 5MG-7.5MG
     Route: 048
  29. TYLENOL [Concomitant]
     Route: 048
     Dates: start: 20020802
  30. PROTONIX [Concomitant]
     Route: 048
  31. AMBIEN [Concomitant]
     Indication: SLEEP DISORDER
     Dosage: 5MG-10MG
     Route: 048
     Dates: start: 20020802
  32. ZOCOR [Concomitant]
     Route: 048

REACTIONS (60)
  - ABDOMINAL PAIN [None]
  - ABDOMINAL PAIN UPPER [None]
  - ARRHYTHMIA [None]
  - ARTHRALGIA [None]
  - ASTHENIA [None]
  - BACK PAIN [None]
  - BILIARY TRACT DISORDER [None]
  - BLOOD CHOLESTEROL INCREASED [None]
  - BLOOD GLUCOSE DECREASED [None]
  - BREAST PAIN [None]
  - BRONCHITIS [None]
  - CHEST PAIN [None]
  - CONSTIPATION [None]
  - CONVULSION [None]
  - COSTOCHONDRITIS [None]
  - DEHYDRATION [None]
  - DYSMENORRHOEA [None]
  - DYSPHONIA [None]
  - DYSPNOEA [None]
  - DYSTHYMIC DISORDER [None]
  - DYSURIA [None]
  - EAR PAIN [None]
  - ESCHERICHIA INFECTION [None]
  - FALL [None]
  - FLANK PAIN [None]
  - GLUCOSE TOLERANCE IMPAIRED [None]
  - HYPERHIDROSIS [None]
  - HYPERKALAEMIA [None]
  - HYPOCHROMIC ANAEMIA [None]
  - HYPOKALAEMIA [None]
  - INSOMNIA [None]
  - IRON DEFICIENCY ANAEMIA [None]
  - LEUKOCYTOSIS [None]
  - MENORRHAGIA [None]
  - MIGRAINE [None]
  - MITRAL VALVE DISEASE [None]
  - MUSCLE SPASMS [None]
  - NAUSEA [None]
  - NECK PAIN [None]
  - OBESITY [None]
  - OBSTRUCTIVE AIRWAYS DISORDER [None]
  - OROPHARYNGEAL PAIN [None]
  - PANCREATITIS [None]
  - PANCREATITIS ACUTE [None]
  - PANCREATITIS CHRONIC [None]
  - PRODUCTIVE COUGH [None]
  - PYELONEPHRITIS ACUTE [None]
  - RADICULAR PAIN [None]
  - RHINITIS [None]
  - SCIATICA [None]
  - SINUS BRADYCARDIA [None]
  - SINUSITIS [None]
  - SKIN LACERATION [None]
  - SPINAL COLUMN STENOSIS [None]
  - SPINAL DISORDER [None]
  - SUPRAPUBIC PAIN [None]
  - TOOTH ABSCESS [None]
  - TYPE 2 DIABETES MELLITUS [None]
  - URINARY TRACT INFECTION [None]
  - UTERINE LEIOMYOMA [None]
